FAERS Safety Report 12964694 (Version 1)
Quarter: 2016Q4

REPORT INFORMATION
  Report Type: Spontaneous
  Country: CA (occurrence: CA)
  Receive Date: 20161122
  Receipt Date: 20161122
  Transmission Date: 20170207
  Serious: Yes (Hospitalization, Other)
  Sender: FDA-Public Use
  Company Number: CA-PFIZER INC-2016521215

PATIENT
  Sex: Female

DRUGS (4)
  1. LYRICA [Suspect]
     Active Substance: PREGABALIN
     Indication: HYPERHIDROSIS
     Dosage: 900 MG, UNK
  2. LYRICA [Suspect]
     Active Substance: PREGABALIN
     Dosage: 300 MG, UNK
  3. LYRICA [Suspect]
     Active Substance: PREGABALIN
     Dosage: 300 MG TWICE A DAY AND AN EXTRA 300 DOSE WAS ADDED
  4. LYRICA [Suspect]
     Active Substance: PREGABALIN
     Indication: BURNING SENSATION
     Dosage: 2400 MG, UNK

REACTIONS (6)
  - Oedema [Unknown]
  - Mental impairment [Unknown]
  - Accident [Unknown]
  - Drug prescribing error [Unknown]
  - Accidental overdose [Unknown]
  - Withdrawal syndrome [Unknown]
